FAERS Safety Report 7891954-X (Version None)
Quarter: 2011Q4

REPORT INFORMATION
  Report Type: 
  Country: None (occurrence: None)
  Receive Date: 20111103
  Receipt Date: 20110812
  Transmission Date: 20120403
  Serious: No
  Sender: FDA-Public Use
  Company Number: US-AMGEN-USASP2011041165

PATIENT
  Age: 56 Year
  Sex: Male

DRUGS (7)
  1. FOLIC ACID [Concomitant]
     Dosage: 1 MG, UNK
  2. FISH OIL [Concomitant]
     Dosage: UNK
  3. LIPITOR [Concomitant]
     Dosage: 10 MG, UNK
  4. FLAXSEED OIL [Concomitant]
     Dosage: UNK
  5. ASPIRIN [Concomitant]
     Dosage: 325 MG, UNK
  6. METHOTREXATE [Concomitant]
     Dosage: 250 MG, UNK
  7. ENBREL [Suspect]
     Indication: PRODUCT USED FOR UNKNOWN INDICATION
     Dosage: 50 MG, QWK
     Route: 058

REACTIONS (2)
  - INJECTION SITE REACTION [None]
  - INJECTION SITE SWELLING [None]
